FAERS Safety Report 6848453-3 (Version None)
Quarter: 2010Q3

REPORT INFORMATION
  Report Type: 
  Country: None (occurrence: None)
  Receive Date: 20100716
  Receipt Date: 20100708
  Transmission Date: 20110219
  Serious: Yes (Other)
  Sender: FDA-Public Use
  Company Number: US-MPIJNJ-2010-02843

PATIENT
  Sex: Female

DRUGS (1)
  1. VELCADE [Suspect]
     Indication: RENAL TRANSPLANT
     Dosage: 1.3 MG/M2, CYCLIC
     Route: 042
     Dates: start: 20090501, end: 20090703

REACTIONS (2)
  - NEURALGIA [None]
  - WOUND COMPLICATION [None]
